FAERS Safety Report 25619149 (Version 1)
Quarter: 2025Q3

REPORT INFORMATION
  Report Type: Spontaneous
  Country: AU (occurrence: AU)
  Receive Date: 20250729
  Receipt Date: 20250729
  Transmission Date: 20251020
  Serious: Yes (Other)
  Sender: ELI LILLY AND COMPANY
  Company Number: AU-ELI_LILLY_AND_COMPANY-AU202507021199

PATIENT
  Age: 42 Year
  Sex: Female

DRUGS (1)
  1. MOUNJARO [Suspect]
     Active Substance: TIRZEPATIDE
     Indication: Product used for unknown indication
     Route: 065
     Dates: end: 20250203

REACTIONS (13)
  - Suicidal ideation [Recovering/Resolving]
  - Anxiety [Recovering/Resolving]
  - Condition aggravated [Recovering/Resolving]
  - Defaecation urgency [Recovering/Resolving]
  - Emotional disorder [Recovering/Resolving]
  - Food intolerance [Recovering/Resolving]
  - Heavy menstrual bleeding [Recovering/Resolving]
  - Hormone level abnormal [Recovering/Resolving]
  - Intrusive thoughts [Recovering/Resolving]
  - Muscle twitching [Recovering/Resolving]
  - Obsessive thoughts [Recovering/Resolving]
  - Panic reaction [Recovering/Resolving]
  - Premenstrual dysphoric disorder [Recovering/Resolving]

NARRATIVE: CASE EVENT DATE: 20241001
